FAERS Safety Report 7016814-8 (Version None)
Quarter: 2010Q3

REPORT INFORMATION
  Report Type: 
  Country: None (occurrence: None)
  Receive Date: 20100927
  Receipt Date: 20100915
  Transmission Date: 20110219
  Serious: Yes (Other)
  Sender: FDA-Public Use
  Company Number: PHHY2010JP44400

PATIENT
  Sex: Male
  Weight: 29 kg

DRUGS (7)
  1. AREDIA [Suspect]
     Indication: OSTEOGENESIS IMPERFECTA
     Dosage: 30 MG PER ADMINISTRATION
     Route: 041
     Dates: start: 20100701, end: 20100703
  2. THYRADIN-S [Concomitant]
     Indication: HYPOPITUITARISM
     Dosage: 50 MG
     Route: 048
  3. THYRADIN-S [Concomitant]
     Dosage: 75 MG
     Route: 048
  4. NORDITROPIN NORDIFLEX [Concomitant]
     Indication: HYPOPITUITARISM
     Dosage: 0.6 MG
     Route: 058
  5. NORDITROPIN NORDIFLEX [Concomitant]
     Dosage: 0.7 MG
     Route: 058
  6. ONEALFA [Concomitant]
     Indication: PROPHYLAXIS
     Dosage: 1.0 MICRO GRAM
     Route: 048
     Dates: start: 20100701, end: 20100707
  7. CALCIUM LACTATE [Concomitant]
     Indication: PROPHYLAXIS
     Dosage: 3 G, UNK
     Route: 048
     Dates: start: 20100701, end: 20100707

REACTIONS (15)
  - ABNORMAL BEHAVIOUR [None]
  - BLOOD CALCIUM DECREASED [None]
  - BLOOD LACTATE DEHYDROGENASE INCREASED [None]
  - BLOOD POTASSIUM DECREASED [None]
  - C-REACTIVE PROTEIN INCREASED [None]
  - CYTOKINE STORM [None]
  - DELIRIUM [None]
  - EYE MOVEMENT DISORDER [None]
  - HAEMATOCRIT DECREASED [None]
  - HAEMOGLOBIN DECREASED [None]
  - HALLUCINATION [None]
  - INAPPROPRIATE AFFECT [None]
  - MEMORY IMPAIRMENT [None]
  - PYREXIA [None]
  - VISION BLURRED [None]
